FAERS Safety Report 5163956-8 (Version None)
Quarter: 2006Q4

REPORT INFORMATION
  Report Type: 
  Country: None (occurrence: None)
  Receive Date: 20061204
  Receipt Date: 20061031
  Transmission Date: 20070319
  Serious: Yes (Other)
  Sender: FDA-Public Use
  Company Number: US-ELI_LILLY_AND_COMPANY-US200611000631

PATIENT
  Age: 68 Year
  Sex: Female
  Weight: 52.154 kg

DRUGS (5)
  1. SYNTHROID [Concomitant]
     Dosage: 0.1 MG, DAILY (1/D)
  2. LIPITOR [Concomitant]
     Dosage: 10 MG, UNK
  3. CYMBALTA [Suspect]
     Indication: DEPRESSION
     Dosage: 60 MG, UNK
     Dates: start: 20061013, end: 20061030
  4. CYMBALTA [Suspect]
     Dosage: 30 MG, UNK
     Dates: start: 20061006, end: 20061012
  5. ALCOHOL [Concomitant]

REACTIONS (6)
  - ALANINE AMINOTRANSFERASE INCREASED [None]
  - ANOREXIA [None]
  - ASPARTATE AMINOTRANSFERASE INCREASED [None]
  - BLOOD ALKALINE PHOSPHATASE INCREASED [None]
  - BLOOD BILIRUBIN INCREASED [None]
  - DECREASED APPETITE [None]
